FAERS Safety Report 4900773-5 (Version None)
Quarter: 2006Q1

REPORT INFORMATION
  Report Type: 
  Country: None (occurrence: None)
  Receive Date: 20060201
  Receipt Date: 20060122
  Transmission Date: 20060701
  Serious: No
  Sender: FDA-Public Use
  Company Number: 06H-167-0304607-00

PATIENT
  Sex: Female

DRUGS (3)
  1. EPHEDRINE SULFATE INJECTION (EPHEDRINE SULFATE) (EPHEDRINE SULFATE) [Suspect]
     Indication: BLOOD PRESSURE SYSTOLIC ABNORMAL
     Dosage: 1.5 MILLIGRAM/MILLITITERS, INTRAVENOUS INFUSION
     Route: 042
  2. NEO-SYNEPHRINE INJECTION (NEO-SYNEPHRINE HYDRCHLORIDE) [Suspect]
     Indication: BLOOD PRESSURE SYSTOLIC ABNORMAL
     Dosage: 50 MCG/ML
  3. HARTMANN SOLUTION (RINGER-L-ACTATE SOLUTION ^FRESNIUS^) [Concomitant]

REACTIONS (2)
  - BRADYCARDIA [None]
  - DRUG EXPOSURE DURING PREGNANCY [None]
